FAERS Safety Report 12998169 (Version 1)
Quarter: 2016Q4

REPORT INFORMATION
  Report Type: Spontaneous
  Country: US (occurrence: US)
  Receive Date: 20161202
  Receipt Date: 20161202
  Transmission Date: 20170207
  Serious: Yes (Hospitalization)
  Sender: FDA-Public Use
  Company Number: None

PATIENT
  Age: 80 Year
  Sex: Male
  Weight: 84.8 kg

DRUGS (3)
  1. 5-FLUOROURACIL (5-FU) [Suspect]
     Active Substance: FLUOROURACIL
     Dates: end: 20161121
  2. ELOXATIN [Suspect]
     Active Substance: OXALIPLATIN
     Dates: end: 20161121
  3. LEUCOVORIN CALCIUM. [Suspect]
     Active Substance: LEUCOVORIN CALCIUM
     Dates: end: 20161121

REACTIONS (5)
  - Dyspnoea [None]
  - Dehydration [None]
  - Pneumothorax [None]
  - Decreased appetite [None]
  - Cough [None]

NARRATIVE: CASE EVENT DATE: 20161128
